FAERS Safety Report 10908527 (Version 1)
Quarter: 2015Q1

REPORT INFORMATION
  Report Type: Spontaneous
  Country: US (occurrence: None)
  Receive Date: 20150309
  Receipt Date: 20150309
  Transmission Date: 20150721
  Serious: Yes (Death)
  Sender: FDA-Public Use
  Company Number: None

PATIENT
  Age: 71 Year
  Sex: Female
  Weight: 46.27 kg

DRUGS (1)
  1. MARINOL [Suspect]
     Active Substance: DRONABINOL
     Indication: ACUTE MYELOID LEUKAEMIA
     Route: 048
     Dates: start: 20150212

REACTIONS (6)
  - Asthenia [None]
  - Pain [None]
  - Syncope [None]
  - Acute myeloid leukaemia [None]
  - Decreased appetite [None]
  - Lethargy [None]

NARRATIVE: CASE EVENT DATE: 20150226
